FAERS Safety Report 5161229-0 (Version None)
Quarter: 2006Q4

REPORT INFORMATION
  Report Type: 
  Country: None (occurrence: None)
  Receive Date: 20061130
  Receipt Date: 20060830
  Transmission Date: 20070319
  Serious: Yes (Other)
  Sender: FDA-Public Use
  Company Number: US-BRISTOL-MYERS SQUIBB COMPANY-13493242

PATIENT
  Sex: Male

DRUGS (7)
  1. ERBITUX [Suspect]
     Indication: NEOPLASM MALIGNANT
     Route: 042
     Dates: start: 20060726
  2. CISPLATIN [Concomitant]
  3. RADIATION THERAPY [Concomitant]
  4. DEMEROL [Concomitant]
     Indication: PREMEDICATION
  5. BENADRYL [Concomitant]
     Indication: PREMEDICATION
  6. ANZEMET [Concomitant]
  7. RANITIDINE [Concomitant]
     Indication: PREMEDICATION

REACTIONS (2)
  - CHILLS [None]
  - PYREXIA [None]
